FAERS Safety Report 9249929 (Version 5)
Quarter: 2013Q4

REPORT INFORMATION
  Report Type: Report from Study
  Country: BE (occurrence: BE)
  Receive Date: 20130423
  Receipt Date: 20131106
  Transmission Date: 20140711
  Serious: Yes (Hospitalization)
  Sender: FDA-Public Use
  Company Number: BE-BRISTOL-MYERS SQUIBB COMPANY-17404476

PATIENT
  Age: 57 Year
  Sex: Male

DRUGS (10)
  1. BELATACEPT [Suspect]
     Indication: RENAL TRANSPLANT
     Route: 042
     Dates: start: 20070222
  2. CELLCEPT [Suspect]
     Indication: RENAL TRANSPLANT
     Dosage: CAPS
     Dates: start: 20070223
  3. METHYLPREDNISOLONE [Suspect]
     Indication: RENAL TRANSPLANT
     Dates: start: 20070226
  4. CARDIOASPIRINE [Concomitant]
     Dosage: TABS
     Dates: start: 20070620
  5. COVERSYL [Concomitant]
     Dates: start: 20070719
  6. D-CURE [Concomitant]
     Dates: start: 20100517
  7. LIPITOR [Concomitant]
     Dates: start: 20070807
  8. TEMESTA [Concomitant]
  9. VALIXA [Concomitant]
  10. FOSAMAX [Concomitant]

REACTIONS (4)
  - Renal failure acute [Not Recovered/Not Resolved]
  - Tenosynovitis [Not Recovered/Not Resolved]
  - Malaise [Recovered/Resolved]
  - Arthritis [Recovered/Resolved]
